FAERS Safety Report 24714846 (Version 2)
Quarter: 2024Q4

REPORT INFORMATION
  Report Type: Spontaneous
  Country: RU (occurrence: RU)
  Receive Date: 20241210
  Receipt Date: 20241216
  Transmission Date: 20250114
  Serious: Yes (Death, Life-Threatening, Hospitalization)
  Sender: SANDOZ
  Company Number: RU-SANDOZ-SDZ2024RU101136

PATIENT
  Sex: Female
  Weight: 65 kg

DRUGS (2)
  1. METHOTREXATE [Suspect]
     Active Substance: METHOTREXATE
     Indication: Rheumatoid arthritis
     Dosage: 100 MG
     Route: 030
     Dates: end: 20241128
  2. LEVOTHYROXINE [Concomitant]
     Active Substance: LEVOTHYROXINE
     Indication: Hypothyroidism
     Dosage: LONG-TERM USE - PER OS
     Route: 065

REACTIONS (9)
  - Pancytopenia [Fatal]
  - Multiple organ dysfunction syndrome [Fatal]
  - Renal injury [Fatal]
  - Acute hepatic failure [Fatal]
  - Shock [Fatal]
  - Asthenia [Fatal]
  - Anaemia [Fatal]
  - Pyrexia [Fatal]
  - Agranulocytosis [Fatal]

NARRATIVE: CASE EVENT DATE: 20241127
